FAERS Safety Report 14452810 (Version 1)
Quarter: 2018Q1

REPORT INFORMATION
  Report Type: Report from Study
  Country: CA (occurrence: CA)
  Receive Date: 20180129
  Receipt Date: 20180129
  Transmission Date: 20180509
  Serious: Yes (Disabling)
  Sender: FDA-Public Use
  Company Number: CA-HLSUS-2017-CA-001249

PATIENT
  Age: 62 Year
  Sex: Male

DRUGS (1)
  1. CLOZARIL [Suspect]
     Active Substance: CLOZAPINE
     Indication: DYSKINESIA
     Route: 048
     Dates: start: 20131206

REACTIONS (2)
  - Parkinson^s disease [Unknown]
  - Orthostatic hypotension [Recovered/Resolved with Sequelae]

NARRATIVE: CASE EVENT DATE: 201708
